FAERS Safety Report 8417430-3 (Version None)
Quarter: 2012Q2

REPORT INFORMATION
  Report Type: 
  Country: None (occurrence: None)
  Receive Date: 20120606
  Receipt Date: 20120604
  Transmission Date: 20120825
  Serious: Yes (Death, Hospitalization)
  Sender: FDA-Public Use
  Company Number: US-JNJFOC-20120501760

PATIENT
  Age: 65 Year
  Sex: Female
  Weight: 99.79 kg

DRUGS (3)
  1. BLOOD THINNERS [Concomitant]
     Route: 065
  2. DOXIL [Suspect]
     Indication: ANGIOSARCOMA
     Route: 042
     Dates: end: 20120101
  3. CARDIAC MEDICATIONS [Concomitant]
     Route: 065

REACTIONS (3)
  - OFF LABEL USE [None]
  - HOSPITALISATION [None]
  - ANGIOSARCOMA [None]
